FAERS Safety Report 15962089 (Version 1)
Quarter: 2019Q1

REPORT INFORMATION
  Report Type: Spontaneous
  Country: AF (occurrence: AF)
  Receive Date: 20190214
  Receipt Date: 20190214
  Transmission Date: 20190417
  Serious: Yes (Hospitalization, Disabling, Other)
  Sender: FDA-Public Use
  Company Number: None

PATIENT
  Age: 65 Year
  Sex: Female
  Weight: 109.35 kg

DRUGS (14)
  1. ABILIFY [Suspect]
     Active Substance: ARIPIPRAZOLE
     Indication: ANXIETY
     Dosage: ?          QUANTITY:1 CAPSULE(S);?
     Route: 048
     Dates: start: 20080101, end: 20171231
  2. TRAZODONE [Concomitant]
     Active Substance: TRAZODONE HYDROCHLORIDE
  3. ATORVASTATIN [Concomitant]
     Active Substance: ATORVASTATIN
  4. ABILIFY [Suspect]
     Active Substance: ARIPIPRAZOLE
     Indication: DEPRESSION
     Dosage: ?          QUANTITY:1 CAPSULE(S);?
     Route: 048
     Dates: start: 20080101, end: 20171231
  5. DESMOPRESSIN [Concomitant]
     Active Substance: DESMOPRESSIN
  6. ASPIRIN. [Concomitant]
     Active Substance: ASPIRIN
  7. DULOXETINE. [Concomitant]
     Active Substance: DULOXETINE
  8. MODAFINIL. [Concomitant]
     Active Substance: MODAFINIL
  9. VITAMINS [Concomitant]
     Active Substance: VITAMINS
  10. LOSARTIN [Concomitant]
     Active Substance: LOSARTAN
  11. HYDROCHLOROTHIAZIDE. [Concomitant]
     Active Substance: HYDROCHLOROTHIAZIDE
  12. FLUOXETINE [Concomitant]
     Active Substance: FLUOXETINE HYDROCHLORIDE
  13. METFORMIN [Concomitant]
     Active Substance: METFORMIN HYDROCHLORIDE
  14. OMEPRAZOLE. [Concomitant]
     Active Substance: OMEPRAZOLE

REACTIONS (3)
  - Suicidal ideation [None]
  - Gambling disorder [None]
  - Micturition disorder [None]

NARRATIVE: CASE EVENT DATE: 20080101
